FAERS Safety Report 14511945 (Version 1)
Quarter: 2018Q1

REPORT INFORMATION
  Report Type: Spontaneous
  Country: US (occurrence: US)
  Receive Date: 20180209
  Receipt Date: 20180209
  Transmission Date: 20180509
  Serious: Yes (Life-Threatening, Hospitalization, Disabling, Other)
  Sender: FDA-Public Use
  Company Number: None

PATIENT
  Age: 49 Year
  Sex: Female
  Weight: 63.05 kg

DRUGS (6)
  1. POLYETHELENE GLYCOL [Concomitant]
     Active Substance: POLYETHYLENE GLYCOL 3350
  2. AMITIZA [Concomitant]
     Active Substance: LUBIPROSTONE
  3. LINZESS [Concomitant]
     Active Substance: LINACLOTIDE
  4. MELATONIN [Concomitant]
     Active Substance: MELATONIN
  5. GABAPENTIN 600MG TABLET [Suspect]
     Active Substance: GABAPENTIN
     Dosage: 90 TAKE 1 TABLET BY MOUTH 3 TIMES A DAY?
     Route: 048
     Dates: start: 20170630
  6. SUPREP BOWEL PREP [Concomitant]
     Active Substance: MAGNESIUM SULFATE\POTASSIUM SULFATE\SODIUM SULFATE

REACTIONS (9)
  - Blood urine present [None]
  - Hepatic enzyme increased [None]
  - Anal fissure [None]
  - Blood glucose increased [None]
  - Renal disorder [None]
  - Anorectal discomfort [None]
  - Vulval disorder [None]
  - Dyspnoea [None]
  - Glomerular filtration rate decreased [None]

NARRATIVE: CASE EVENT DATE: 20170630
